FAERS Safety Report 12559346 (Version 1)
Quarter: 2016Q3

REPORT INFORMATION
  Report Type: Spontaneous
  Country: US (occurrence: US)
  Receive Date: 20160715
  Receipt Date: 20160715
  Transmission Date: 20161109
  Serious: No
  Sender: FDA-Public Use
  Company Number: US-ACCORD-039896

PATIENT

DRUGS (6)
  1. DOCETAXEL. [Suspect]
     Active Substance: DOCETAXEL
     Indication: PRODUCT USED FOR UNKNOWN INDICATION
  2. GOSERELIN/GOSERELIN ACETATE [Concomitant]
  3. PACLITAXEL/PACLITAXEL LIPOSOME [Concomitant]
  4. ABIRATERONE [Concomitant]
     Active Substance: ABIRATERONE
  5. SIPULEUCEL-T [Concomitant]
     Active Substance: SIPULEUCEL-T
  6. ENZALUTAMIDE [Concomitant]
     Active Substance: ENZALUTAMIDE

REACTIONS (1)
  - Condition aggravated [Unknown]
